FAERS Safety Report 7090820-X (Version None)
Quarter: 2010Q4

REPORT INFORMATION
  Report Type: 
  Country: None (occurrence: None)
  Receive Date: 20101012
  Receipt Date: 20100622
  Transmission Date: 20110411
  Serious: No
  Sender: FDA-Public Use
  Company Number: US_001194

PATIENT
  Sex: Male
  Weight: 34.2 kg

DRUGS (2)
  1. KUVAN [Suspect]
     Indication: PHENYLKETONURIA
     Dosage: ORAL
     Route: 048
     Dates: start: 20100525, end: 20100602
  2. PHENYLALANINE [Concomitant]

REACTIONS (5)
  - DECREASED APPETITE [None]
  - DIZZINESS [None]
  - HEADACHE [None]
  - PARAESTHESIA ORAL [None]
  - SOMNOLENCE [None]
